FAERS Safety Report 12546942 (Version 11)
Quarter: 2017Q1

REPORT INFORMATION
  Report Type: Spontaneous
  Country: US (occurrence: US)
  Receive Date: 20160711
  Receipt Date: 20170214
  Transmission Date: 20170428
  Serious: Yes (Other)
  Sender: FDA-Public Use
  Company Number: US-CELGENEUS-USA-2016071944

PATIENT
  Age: 67 Year
  Sex: Male

DRUGS (1)
  1. OTEZLA [Suspect]
     Active Substance: APREMILAST
     Indication: PSORIATIC ARTHROPATHY
     Dosage: UNKNOWN
     Route: 048
     Dates: start: 20151020

REACTIONS (5)
  - Malaise [Unknown]
  - Ear infection [Unknown]
  - Respiratory tract infection [Unknown]
  - Diarrhoea [Unknown]
  - Eye infection [Unknown]

NARRATIVE: CASE EVENT DATE: 201602
